FAERS Safety Report 6124286-0 (Version None)
Quarter: 2009Q1

REPORT INFORMATION
  Report Type: 
  Country: None (occurrence: None)
  Receive Date: 20090317
  Receipt Date: 20090306
  Transmission Date: 20090719
  Serious: Yes (Hospitalization)
  Sender: FDA-Public Use
  Company Number: 2009AP000970

PATIENT
  Age: 56 Year
  Sex: Male
  Weight: 78.9259 kg

DRUGS (4)
  1. ETODOLAC [Suspect]
     Indication: ARTHRITIS
     Dosage: 400 MG;QD;PO
     Route: 048
     Dates: start: 20080228, end: 20080301
  2. EZETIMIBE [Concomitant]
  3. SIMVASTATIN [Concomitant]
  4. BENAZEPRIL HYDROCHLORIDE [Concomitant]

REACTIONS (5)
  - CHEST DISCOMFORT [None]
  - FLUID RETENTION [None]
  - OEDEMA PERIPHERAL [None]
  - RENAL FAILURE [None]
  - WEIGHT INCREASED [None]
